FAERS Safety Report 11952663 (Version 2)
Quarter: 2016Q1

REPORT INFORMATION
  Report Type: Report from Study
  Country: AU (occurrence: AU)
  Receive Date: 20160125
  Receipt Date: 20160331
  Transmission Date: 20160526
  Serious: Yes (Hospitalization)
  Sender: FDA-Public Use
  Company Number: AU-ABBVIE-16P-008-1542190-00

PATIENT
  Age: 43 Year
  Sex: Male

DRUGS (20)
  1. PANTOPRAZOLE [Concomitant]
     Active Substance: PANTOPRAZOLE SODIUM
     Indication: GASTROOESOPHAGEAL REFLUX DISEASE
     Route: 048
  2. BACLOFEN. [Concomitant]
     Active Substance: BACLOFEN
     Indication: PAIN
     Route: 048
  3. CLEXANE [Concomitant]
     Active Substance: ENOXAPARIN SODIUM
     Indication: PROPHYLAXIS
     Dosage: SINGLE DOSE
     Route: 058
     Dates: start: 20151230, end: 20151230
  4. ACYCLOVIR. [Concomitant]
     Active Substance: ACYCLOVIR
     Indication: CENTRAL NERVOUS SYSTEM INFECTION
     Route: 042
     Dates: start: 20151229, end: 20151230
  5. ONDANSETRON [Concomitant]
     Active Substance: ONDANSETRON
     Indication: NAUSEA
     Dosage: QID WHEN REQUIRED
     Route: 042
     Dates: start: 20151230, end: 20151231
  6. RIBAVIRIN. [Suspect]
     Active Substance: RIBAVIRIN
     Indication: HEPATITIS C
     Dosage: 200MG DAY/ 400MG NIGHT
     Route: 048
     Dates: start: 20151113, end: 20160205
  7. CLONAZEPAM. [Concomitant]
     Active Substance: CLONAZEPAM
     Indication: RESTLESS LEGS SYNDROME
  8. ENTANYL [Concomitant]
     Indication: PRODUCT USED FOR UNKNOWN INDICATION
     Dosage: 125 MG/HR EVERY 3 DAYS
     Route: 062
  9. TENOFOVIR [Concomitant]
     Active Substance: TENOFOVIR
     Indication: HEPATITIS B
     Route: 048
     Dates: start: 20150528
  10. CEFTRIAXONE. [Concomitant]
     Active Substance: CEFTRIAXONE
     Indication: CENTRAL NERVOUS SYSTEM INFECTION
     Route: 042
     Dates: start: 20151229, end: 20151231
  11. OXYCODONE [Concomitant]
     Active Substance: OXYCODONE
     Indication: PAIN
     Dosage: 5-10MG 4/HR WHEN REQIRED
     Dates: start: 20151230, end: 20160102
  12. VIEKIRA PAK [Suspect]
     Active Substance: DASABUVIR\OMBITASVIR\PARITAPREVIR\RITONAVIR
     Indication: HEPATITIS C
     Dosage: 750/50/12.5- 2 MANE/ DASABUVIR 250/DAY
     Route: 048
     Dates: start: 20151113, end: 20160205
  13. CHOLECALCIFEROL [Concomitant]
     Active Substance: CHOLECALCIFEROL
     Indication: VITAMIN D DEFICIENCY
     Dosage: EVERY 3 MONTHS
     Route: 048
     Dates: start: 201511
  14. PARACETAMOL [Concomitant]
     Active Substance: ACETAMINOPHEN
     Indication: PAIN
     Dates: start: 20151230, end: 20151230
  15. MORPHINE [Concomitant]
     Active Substance: MORPHINE
     Indication: PAIN
     Route: 058
     Dates: start: 20151229, end: 20160101
  16. FENTANYL. [Concomitant]
     Active Substance: FENTANYL
     Indication: PAIN
     Dosage: STAT
     Route: 058
  17. CLONAZEPAM. [Concomitant]
     Active Substance: CLONAZEPAM
     Indication: EPILEPSY
  18. METOCLOPRAMIDE. [Concomitant]
     Active Substance: METOCLOPRAMIDE
     Indication: NAUSEA
     Dosage: STAT
     Route: 042
     Dates: start: 20160110
  19. LAMOTRIGINE. [Concomitant]
     Active Substance: LAMOTRIGINE
     Indication: EPILEPSY
     Route: 048
  20. COLOXYL WITH SENNA [Concomitant]
     Active Substance: DOCUSATE\SENNOSIDES
     Indication: CONSTIPATION
     Route: 048
     Dates: start: 20150102, end: 20150102

REACTIONS (24)
  - Pyrexia [Recovered/Resolved]
  - Splenic varices [Unknown]
  - Renal cyst [Unknown]
  - Atelectasis [Unknown]
  - Portal hypertension [Unknown]
  - Headache [Not Recovered/Not Resolved]
  - Vomiting [Not Recovered/Not Resolved]
  - Malnutrition [Unknown]
  - Pain [Unknown]
  - Viral infection [Unknown]
  - Vomiting [Recovered/Resolved]
  - Photophobia [Recovered/Resolved]
  - Migraine [Unknown]
  - Hepatosplenomegaly [Unknown]
  - Portal vein dilatation [Unknown]
  - Faecal volume increased [Unknown]
  - Weight decreased [Unknown]
  - Asthenia [Unknown]
  - Headache [Recovered/Resolved]
  - Vomiting [Recovered/Resolved]
  - Drug dose omission [Unknown]
  - Fatigue [Unknown]
  - Agitated depression [Unknown]
  - Pelvic fluid collection [Unknown]

NARRATIVE: CASE EVENT DATE: 20151224
